FAERS Safety Report 8833692 (Version 2)
Quarter: 2012Q4

REPORT INFORMATION
  Report Type: 
  Country: FR (occurrence: FR)
  Receive Date: 20121010
  Receipt Date: 20121220
  Transmission Date: 20130627
  Serious: Yes (Life-Threatening)
  Sender: FDA-Public Use
  Company Number: FR-SANOFI-AVENTIS-2012SA072202

PATIENT
  Age: 47 Year
  Sex: Male
  Weight: 72 kg

DRUGS (12)
  1. ELOXATIN [Suspect]
     Indication: ADENOCARCINOMA OF COLON
     Route: 042
     Dates: start: 20120914, end: 20120914
  2. 5-FU [Concomitant]
     Indication: ADENOCARCINOMA OF COLON
     Route: 065
     Dates: start: 20120914, end: 20120914
  3. FOLINIC ACID [Concomitant]
     Indication: ADENOCARCINOMA OF COLON
     Route: 065
     Dates: start: 20120914, end: 20120914
  4. KARDEGIC [Concomitant]
     Route: 065
  5. HYDROCHLOROTHIAZIDE/IRBESARTAN [Concomitant]
     Route: 065
  6. LAMOTRIGINE [Concomitant]
     Route: 065
  7. DEPAKOTE [Concomitant]
     Route: 065
  8. LORMETAZEPAM [Concomitant]
     Route: 065
  9. THERALENE [Concomitant]
     Route: 065
  10. EPOETIN BETA [Concomitant]
     Route: 065
  11. PROPYLTHIOURACIL [Concomitant]
     Route: 065
  12. OMEPRAZOLE [Concomitant]
     Route: 065

REACTIONS (2)
  - Multi-organ failure [Unknown]
  - Incorrect route of drug administration [Unknown]
